FAERS Safety Report 5895883-2 (Version None)
Quarter: 2008Q3

REPORT INFORMATION
  Report Type: 
  Country: None (occurrence: None)
  Receive Date: 20080924
  Receipt Date: 20080916
  Transmission Date: 20090109
  Serious: Yes (Other)
  Sender: FDA-Public Use
  Company Number: US-ABBOTT-08P-163-0476551-00

PATIENT
  Sex: Male
  Weight: 86.26 kg

DRUGS (6)
  1. HUMIRA [Suspect]
     Indication: ANKYLOSING SPONDYLITIS
     Route: 058
     Dates: start: 20070101
  2. CELECOXIB [Concomitant]
     Indication: PAIN
     Route: 048
  3. ATENOLOL [Concomitant]
     Indication: BLOOD PRESSURE
     Route: 048
  4. LOVASTATIN [Concomitant]
     Indication: BLOOD CHOLESTEROL
     Route: 048
  5. BLOOD THINNER [Concomitant]
     Indication: ANTICOAGULANT THERAPY
     Route: 048
  6. DILANTIN [Concomitant]
     Indication: CONVULSION
     Route: 048

REACTIONS (2)
  - GYNAECOMASTIA [None]
  - HAEMORRHAGE [None]
